FAERS Safety Report 9249546 (Version 4)
Quarter: 2013Q3

REPORT INFORMATION
  Report Type: Spontaneous
  Country: US (occurrence: US)
  Receive Date: 20130423
  Receipt Date: 20130822
  Transmission Date: 20140515
  Serious: Yes (Hospitalization)
  Sender: FDA-Public Use
  Company Number: US-GILEAD-2013-0071228

PATIENT
  Sex: Male

DRUGS (4)
  1. LETAIRIS [Suspect]
     Indication: PULMONARY HYPERTENSION
     Dosage: 5 MG, QD
     Dates: start: 20121218
  2. LETAIRIS [Suspect]
     Indication: CARDIAC PROCEDURE COMPLICATION
  3. LETAIRIS [Suspect]
     Indication: CORONARY ARTERY DISEASE
  4. REVATIO [Concomitant]

REACTIONS (4)
  - Fibrinous bronchitis [Unknown]
  - Acute respiratory failure [Unknown]
  - Pneumothorax [Unknown]
  - Catheterisation cardiac [Unknown]
